FAERS Safety Report 9447763 (Version 2)
Quarter: 2013Q3

REPORT INFORMATION
  Report Type: Spontaneous
  Country: TR (occurrence: None)
  Receive Date: 20130805
  Receipt Date: 20130819
  Transmission Date: 20140515
  Serious: Yes (Other)
  Sender: FDA-Public Use
  Company Number: SYM-2013-07401

PATIENT
  Age: 3 Year
  Sex: 0

DRUGS (1)
  1. METRONIDAZOLE [Suspect]
     Indication: DIARRHOEA

REACTIONS (5)
  - Vertigo [None]
  - Ataxia [None]
  - Headache [None]
  - Blindness [None]
  - Dizziness [None]
